FAERS Safety Report 11385805 (Version 2)
Quarter: 2015Q3

REPORT INFORMATION
  Report Type: Spontaneous
  Country: IT (occurrence: IT)
  Receive Date: 20150817
  Receipt Date: 20150819
  Transmission Date: 20151125
  Serious: Yes (Hospitalization)
  Sender: FDA-Public Use
  Company Number: IT-009507513-1508ITA005796

PATIENT
  Age: 52 Year
  Sex: Female

DRUGS (7)
  1. SINEMET [Suspect]
     Active Substance: CARBIDOPA\LEVODOPA
     Dosage: 0.5 DOSE UNIT, 3 TIMES PER DAY
     Route: 048
     Dates: start: 20150807, end: 20150807
  2. SINEMET [Suspect]
     Active Substance: CARBIDOPA\LEVODOPA
     Indication: PARKINSONISM
     Dosage: 0.5 DOSE UNIT, DAILY
     Route: 048
     Dates: start: 20150805, end: 20150805
  3. SINEMET [Suspect]
     Active Substance: CARBIDOPA\LEVODOPA
     Dosage: 1 DOSE UNIT, 3 TIMES PER DAY
     Route: 048
     Dates: start: 20150808, end: 20150808
  4. JUMEX [Concomitant]
     Active Substance: SELEGILINE HYDROCHLORIDE
     Dosage: UNK
  5. REQUIP [Concomitant]
     Active Substance: ROPINIROLE HYDROCHLORIDE
     Dosage: UNK
  6. SINEMET [Suspect]
     Active Substance: CARBIDOPA\LEVODOPA
     Dosage: 0.5 DOSE UNIT, 3 TIMES PER DAY
     Route: 048
     Dates: start: 20150809, end: 20150809
  7. SINEMET [Suspect]
     Active Substance: CARBIDOPA\LEVODOPA
     Dosage: UNK, DAILY
     Route: 048
     Dates: start: 20150806, end: 20150806

REACTIONS (4)
  - Nausea [Recovering/Resolving]
  - Hypertensive crisis [Recovering/Resolving]
  - Hyperhidrosis [Recovering/Resolving]
  - Hyperhidrosis [Recovering/Resolving]

NARRATIVE: CASE EVENT DATE: 20150805
